FAERS Safety Report 13298077 (Version 1)
Quarter: 2017Q1

REPORT INFORMATION
  Report Type: Spontaneous
  Country: JP (occurrence: JP)
  Receive Date: 20170306
  Receipt Date: 20170306
  Transmission Date: 20170428
  Serious: Yes (Other)
  Sender: FDA-Public Use
  Company Number: JP-009507513-1702JPN001038J

PATIENT
  Age: 74 Year

DRUGS (1)
  1. BELSOMRA [Suspect]
     Active Substance: SUVOREXANT
     Dosage: 405 MG, UNK
     Route: 048

REACTIONS (3)
  - Fall [Recovered/Resolved]
  - Accidental overdose [Unknown]
  - Altered state of consciousness [Recovered/Resolved]
